FAERS Safety Report 10149989 (Version 1)
Quarter: 2014Q2

REPORT INFORMATION
  Report Type: Spontaneous
  Country: US (occurrence: US)
  Receive Date: 20140502
  Receipt Date: 20140502
  Transmission Date: 20141212
  Serious: Yes (Other)
  Sender: FDA-Public Use
  Company Number: US-PFIZER INC-2014120294

PATIENT
  Age: 77 Year
  Sex: Female
  Weight: 68.03 kg

DRUGS (3)
  1. PREMARIN [Suspect]
     Indication: VAGINAL LACERATION
     Dosage: 0.625 MG, ALTERNATE DAY
     Route: 067
     Dates: start: 201301
  2. AMLODIPINE [Concomitant]
     Indication: HYPERTENSION
     Dosage: 10 MG, UNK
  3. LOSARTAN [Concomitant]
     Indication: HYPERTENSION
     Dosage: 50 MG, UNK

REACTIONS (3)
  - Blood magnesium decreased [Unknown]
  - Stress [Unknown]
  - Weight decreased [Unknown]
